FAERS Safety Report 8142721 (Version 2)
Quarter: 2012Q4

REPORT INFORMATION
  Report Type: 
  Country: ZA (occurrence: ZA)
  Receive Date: 20110919
  Receipt Date: 20120917
  Transmission Date: 20130627
  Serious: Yes (Other)
  Sender: FDA-Public Use
  Company Number: ZA-GLAXOSMITHKLINE-B0746234A

PATIENT
  Age: 48 Year
  Sex: Female

DRUGS (1)
  1. UNSPECIFIED INGREDIENT [Suspect]
     Indication: ASTHMA
     Route: 055
     Dates: start: 201107

REACTIONS (3)
  - Oral candidiasis [Not Recovered/Not Resolved]
  - Glossodynia [Unknown]
  - Laryngeal pain [Unknown]
